FAERS Safety Report 21171402 (Version 1)
Quarter: 2022Q3

REPORT INFORMATION
  Report Type: Spontaneous
  Country: US (occurrence: US)
  Receive Date: 20220804
  Receipt Date: 20220804
  Transmission Date: 20221027
  Serious: No
  Sender: FDA-Public Use
  Company Number: US-PFIZER INC-PV202200034999

PATIENT
  Age: 67 Year
  Sex: Female

DRUGS (5)
  1. PAXLOVID [Suspect]
     Active Substance: NIRMATRELVIR\RITONAVIR
     Dosage: UNK
     Dates: end: 20220729
  2. LIORESAL [Concomitant]
     Active Substance: BACLOFEN
     Indication: Muscle spasms
     Dosage: 10 MG, AS NEEDED (TAKE 1 TABLET (10 MG TOTAL) BY MOUTH 3 (THREE) TIMES DAILY )
     Route: 048
     Dates: start: 20211118
  3. BIOTIN [Concomitant]
     Active Substance: BIOTIN
     Dosage: 5000 UG, 1X/DAY (TAKE BY MOUTH EVERY MORNING)
     Route: 048
  4. DICLOFENAC [Concomitant]
     Active Substance: DICLOFENAC
     Dosage: 2 G, 2X/DAY (USE DOSING CARD TO MEASURE DOSE)
     Route: 061
     Dates: start: 20210513
  5. VITAMINS NOS [Concomitant]
     Active Substance: VITAMINS
     Dosage: 1 DF, DAILY (TAKE 1 TABLET BY MOUTH DAILY WITH BREAKFAST)
     Route: 048

REACTIONS (6)
  - Headache [Recovered/Resolved]
  - Dyskinesia [Recovered/Resolved]
  - Vomiting [Recovered/Resolved]
  - Asthenia [Recovered/Resolved]
  - Gait disturbance [Recovered/Resolved]
  - Joint lock [Recovered/Resolved]
